FAERS Safety Report 25075446 (Version 1)
Quarter: 2025Q1

REPORT INFORMATION
  Report Type: Spontaneous
  Country: CH (occurrence: CH)
  Receive Date: 20250313
  Receipt Date: 20250313
  Transmission Date: 20250409
  Serious: Yes (Hospitalization)
  Sender: SANDOZ
  Company Number: None

PATIENT
  Age: 37 Year
  Sex: Male

DRUGS (6)
  1. FLUOXETINE [Interacting]
     Active Substance: FLUOXETINE HYDROCHLORIDE
     Indication: Product used for unknown indication
     Dosage: 20 MG, QD
     Route: 065
     Dates: start: 20240930, end: 20250215
  2. FLUOXETINE [Interacting]
     Active Substance: FLUOXETINE HYDROCHLORIDE
     Route: 065
     Dates: start: 20250216, end: 20250216
  3. FOCALIN XR [Interacting]
     Active Substance: DEXMETHYLPHENIDATE HYDROCHLORIDE
     Route: 065
     Dates: start: 20250216, end: 20250216
  4. FOCALIN XR [Interacting]
     Active Substance: DEXMETHYLPHENIDATE HYDROCHLORIDE
     Indication: Product used for unknown indication
     Route: 065
     Dates: end: 20250215
  5. METHYLPHENIDATE [Interacting]
     Active Substance: METHYLPHENIDATE
     Route: 065
     Dates: start: 20250216, end: 20250216
  6. METHYLPHENIDATE [Interacting]
     Active Substance: METHYLPHENIDATE
     Indication: Product used for unknown indication
     Route: 065
     Dates: start: 20250215

REACTIONS (8)
  - Disorganised speech [Recovered/Resolved]
  - Delusion [Recovered/Resolved]
  - Blood creatine phosphokinase increased [Recovering/Resolving]
  - Hypokalaemia [Recovered/Resolved]
  - Sinus tachycardia [Recovered/Resolved]
  - Psychomotor hyperactivity [Recovered/Resolved]
  - Drug interaction [Recovered/Resolved]
  - Intentional overdose [Recovered/Resolved]

NARRATIVE: CASE EVENT DATE: 20250216
